FAERS Safety Report 13852783 (Version 1)
Quarter: 2017Q3

REPORT INFORMATION
  Report Type: Spontaneous
  Country: US (occurrence: US)
  Receive Date: 20170809
  Receipt Date: 20170809
  Transmission Date: 20171127
  Serious: No
  Sender: FDA-Public Use
  Company Number: US-ROCHE-641156

PATIENT
  Age: 62 Year
  Sex: Female

DRUGS (4)
  1. VITAMIN C [Concomitant]
     Active Substance: ASCORBIC ACID
     Dosage: NAME RPTD AS EXTRA VITAMIN C
     Route: 065
  2. ZOCOR [Concomitant]
     Active Substance: SIMVASTATIN
     Dosage: NAME RPTD AS GENERIC ZOCOR
     Route: 065
  3. BONIVA [Suspect]
     Active Substance: IBANDRONATE SODIUM
     Indication: OSTEOPENIA
     Route: 048
  4. FISH OIL [Concomitant]
     Active Substance: FISH OIL
     Route: 065

REACTIONS (2)
  - Fall [Unknown]
  - Arthralgia [Unknown]
